FAERS Safety Report 5420850-2 (Version None)
Quarter: 2007Q3

REPORT INFORMATION
  Report Type: 
  Country: None (occurrence: None)
  Receive Date: 20070816
  Receipt Date: 20070806
  Transmission Date: 20080115
  Serious: Yes (Other)
  Sender: FDA-Public Use
  Company Number: GXKR2007GB06775

PATIENT
  Age: 29 Year
  Sex: Male

DRUGS (4)
  1. SALBUTAMOL (NGX)(SALBUTAMOL) UNKNOWN [Suspect]
  2. CETIRIZINE HCL [Suspect]
     Dosage: ORAL
     Route: 048
  3. LOSARTAN POTASSIUM [Suspect]
  4. VARENICLINE TARTRATE(VARENICLINE TARTRATE) [Suspect]
     Dosage: 1 MG, BID, ORAL
     Route: 048

REACTIONS (1)
  - CONVULSION [None]
